FAERS Safety Report 4279243-6 (Version None)
Quarter: 2004Q1

REPORT INFORMATION
  Report Type: 
  Country: None (occurrence: None)
  Receive Date: 20040122
  Receipt Date: 20040113
  Transmission Date: 20041129
  Serious: Yes (Other)
  Sender: FDA-Public Use
  Company Number: 2004194617FR

PATIENT
  Sex: Male

DRUGS (1)
  1. XALATAN [Suspect]
     Indication: HYPERTONIA
     Dosage: OPHTHALMIC

REACTIONS (1)
  - RETINAL NEOVASCULARISATION [None]
